FAERS Safety Report 9732103 (Version 2)
Quarter: 2014Q1

REPORT INFORMATION
  Report Type: Spontaneous
  Country: US (occurrence: US)
  Receive Date: 20131204
  Receipt Date: 20140108
  Transmission Date: 20141002
  Serious: No
  Sender: FDA-Public Use
  Company Number: US-009507513-1311USA003752

PATIENT
  Sex: 0

DRUGS (1)
  1. IMPLANON [Suspect]
     Dosage: UNK
     Route: 059
     Dates: start: 201009

REACTIONS (4)
  - Device difficult to use [Recovered/Resolved]
  - Incorrect drug administration duration [Recovered/Resolved]
  - Medical device complication [Recovered/Resolved]
  - No adverse event [Unknown]
